FAERS Safety Report 9916638 (Version 1)
Quarter: 2014Q1

REPORT INFORMATION
  Report Type: Spontaneous
  Country: US (occurrence: US)
  Receive Date: 20140221
  Receipt Date: 20140221
  Transmission Date: 20141002
  Serious: Yes (Death)
  Sender: FDA-Public Use
  Company Number: US-B.I. PHARMACEUTICALS,INC./RIDGEFIELD-2014-BI-07378BP

PATIENT
  Sex: Female

DRUGS (1)
  1. GILOTRIF [Suspect]
     Indication: OFF LABEL USE
     Dosage: 40 MG
     Route: 048
     Dates: start: 2013, end: 2013

REACTIONS (2)
  - Non-small cell lung cancer [Fatal]
  - Off label use [Unknown]
